FAERS Safety Report 4306745-6 (Version None)
Quarter: 2004Q1

REPORT INFORMATION
  Report Type: 
  Country: None (occurrence: None)
  Receive Date: 20040225
  Receipt Date: 20031226
  Transmission Date: 20041129
  Serious: No
  Sender: FDA-Public Use
  Company Number: US-BRISTOL-MYERS SQUIBB COMPANY-12474136

PATIENT
  Age: 64 Year
  Sex: Female
  Weight: 113 kg

DRUGS (3)
  1. EXCEDRIN ES TABS [Suspect]
     Indication: ARTHRITIS
     Route: 048
     Dates: start: 20031222, end: 20031225
  2. ZOLOFT [Concomitant]
  3. PREVACID [Concomitant]

REACTIONS (4)
  - DYSPEPSIA [None]
  - NAUSEA [None]
  - PALPITATIONS [None]
  - THROAT IRRITATION [None]
